FAERS Safety Report 12620945 (Version 1)
Quarter: 2016Q3

REPORT INFORMATION
  Report Type: Spontaneous
  Country: US (occurrence: None)
  Receive Date: 20160803
  Receipt Date: 20160803
  Transmission Date: 20161109
  Serious: Yes (Hospitalization)
  Sender: FDA-Public Use
  Company Number: None

PATIENT
  Age: 12 Year
  Sex: Female
  Weight: 42.5 kg

DRUGS (1)
  1. FLEET ENEMA [Suspect]
     Active Substance: SODIUM PHOSPHATE, DIBASIC\SODIUM PHOSPHATE, MONOBASIC
     Indication: FUNCTIONAL GASTROINTESTINAL DISORDER
     Dates: start: 20160609, end: 20160609

REACTIONS (2)
  - Tetany [None]
  - Mental status changes [None]

NARRATIVE: CASE EVENT DATE: 20160609
